FAERS Safety Report 9121299 (Version 4)
Quarter: 2013Q2

REPORT INFORMATION
  Report Type: Spontaneous
  Country: US (occurrence: US)
  Receive Date: 20130225
  Receipt Date: 20130513
  Transmission Date: 20140414
  Serious: Yes (Hospitalization, Congenital Anomaly, Other)
  Sender: FDA-Public Use
  Company Number: US-PFIZER INC-2013065418

PATIENT
  Sex: Male

DRUGS (15)
  1. ZOLOFT [Suspect]
     Indication: DEPRESSION
     Dosage: 25 MG DAILY
     Route: 064
     Dates: start: 201002, end: 2011
  2. ZOLOFT [Suspect]
     Indication: ANXIETY
     Dosage: 50MG DAILY
     Route: 064
     Dates: start: 2011, end: 2011
  3. ZOLOFT [Suspect]
     Dosage: 100MG DAILY
     Route: 064
     Dates: start: 201203, end: 201206
  4. PRENATAL VITAMINS [Concomitant]
     Indication: VITAMIN SUPPLEMENTATION
     Dosage: UNK, TWICE DAILY
     Route: 064
  5. EPIDRIN [Concomitant]
     Dosage: UNK
     Route: 064
  6. NORTRIPTYLINE [Concomitant]
     Indication: MIGRAINE
     Dosage: 25MG DAILY
     Route: 064
     Dates: start: 20091103, end: 20100107
  7. CLARITIN [Concomitant]
     Indication: HYPERSENSITIVITY
     Dosage: UNK, AS NEEDED
     Route: 064
  8. SERTRALINE [Concomitant]
     Indication: DEPRESSION
     Dosage: 25 MG, UNK
     Route: 064
     Dates: start: 20100216, end: 20101019
  9. SERTRALINE [Concomitant]
     Indication: ANXIETY
  10. NITROFURANTOIN [Concomitant]
     Indication: INFECTION
     Dosage: 100 MG, 4X/DAY
     Route: 064
     Dates: start: 20100223, end: 20100301
  11. PROMETHAZINE [Concomitant]
     Indication: NAUSEA
     Dosage: 25 MG, EVERY 4-6 HOURS AS NEEDED
     Route: 064
     Dates: start: 20100223, end: 20100301
  12. PROCHLORPERAZINE [Concomitant]
     Indication: NAUSEA
     Dosage: 10 MG, 3X/DAY AS NEEDED
     Route: 064
     Dates: start: 20100320, end: 20100326
  13. PROCHLORPERAZINE [Concomitant]
     Dosage: 5 MG, 3X/DAY AS NEEDED
     Route: 064
     Dates: start: 20100320, end: 20100326
  14. IBUPROFEN [Concomitant]
     Dosage: UNK
     Route: 064
  15. TYLENOL [Concomitant]
     Dosage: UNK
     Route: 064

REACTIONS (3)
  - Foetal exposure during pregnancy [Not Recovered/Not Resolved]
  - Craniosynostosis [Not Recovered/Not Resolved]
  - Respiratory disorder [Unknown]
